FAERS Safety Report 6105857-4 (Version None)
Quarter: 2009Q1

REPORT INFORMATION
  Report Type: 
  Country: None (occurrence: None)
  Receive Date: 20090306
  Receipt Date: 20090224
  Transmission Date: 20090719
  Serious: Yes (Disabling)
  Sender: FDA-Public Use
  Company Number: JP-MERCK-98091788

PATIENT
  Age: 31 Year
  Sex: Male
  Weight: 67 kg

DRUGS (7)
  1. CRIXIVAN [Suspect]
     Indication: HIV INFECTION
     Route: 048
     Dates: start: 19960913, end: 19961027
  2. CRIXIVAN [Suspect]
     Route: 048
     Dates: start: 19961028, end: 19970109
  3. CRIXIVAN [Suspect]
     Route: 048
     Dates: start: 19970110, end: 19980513
  4. HIVID [Suspect]
     Indication: HIV INFECTION
     Route: 048
     Dates: start: 19960913, end: 19990217
  5. LOXONIN [Suspect]
     Indication: ARTHRALGIA
     Route: 048
     Dates: start: 19970606, end: 19980513
  6. BANAMBAX [Concomitant]
     Indication: INFECTION PROPHYLAXIS
     Dates: start: 19971101
  7. KOGENATE [Concomitant]
     Indication: HAEMARTHROSIS
     Route: 042
     Dates: start: 19971101

REACTIONS (7)
  - ARTHRALGIA [None]
  - NEPHRITIS [None]
  - PYELONEPHRITIS CHRONIC [None]
  - PYURIA [None]
  - RENAL ATROPHY [None]
  - RENAL FAILURE [None]
  - URINARY SEDIMENT ABNORMAL [None]
